FAERS Safety Report 23889616 (Version 1)
Quarter: 2024Q2

REPORT INFORMATION
  Report Type: Spontaneous
  Country: ES (occurrence: ES)
  Receive Date: 20240523
  Receipt Date: 20240523
  Transmission Date: 20240716
  Serious: Yes (Other)
  Sender: FDA-Public Use
  Company Number: ES-009507513-2405ESP005038

PATIENT
  Sex: Female

DRUGS (1)
  1. PEMBROLIZUMAB [Suspect]
     Active Substance: PEMBROLIZUMAB
     Indication: Endometrial cancer
     Dosage: UNK, CYCLICAL
     Dates: start: 2023, end: 20240321

REACTIONS (5)
  - Ascites [Recovered/Resolved]
  - Drug-induced liver injury [Recovered/Resolved]
  - Gastrointestinal disorder [Recovered/Resolved]
  - Lymphadenopathy [Recovered/Resolved]
  - Off label use [Unknown]

NARRATIVE: CASE EVENT DATE: 20230101
